FAERS Safety Report 5472420-8 (Version None)
Quarter: 2007Q3

REPORT INFORMATION
  Report Type: 
  Country: None (occurrence: None)
  Receive Date: 20070927
  Receipt Date: 20070912
  Transmission Date: 20080115
  Serious: Yes (Congenital Anomaly)
  Sender: FDA-Public Use
  Company Number: 161421ISR

PATIENT
  Age: 1 Year
  Sex: Male

DRUGS (4)
  1. CISPLATIN [Suspect]
     Indication: METASTASIS
     Dosage: (25 MG/M2, ON DAYS 1-3) TRANSPLACENTAL
     Route: 064
  2. TAMOXIFEN CITRATE [Suspect]
     Indication: METASTASIS
     Dosage: 40 MG TRANSPLACENTAL
     Route: 064
  3. CARMUSTINE [Suspect]
     Indication: METASTASIS
     Dosage: 100 MG/M2 ON DAY 1 OF EVERY OTHER MONTHLY CYCLE (CYCLICAL) TRANSPLACENTAL
     Route: 064
  4. DACARBAZINE [Suspect]
     Indication: METASTASIS
     Dosage: 220 MG/M2 ON DAYS 1-3 TRANSPLACENTAL
     Route: 064

REACTIONS (7)
  - CAESAREAN SECTION [None]
  - DRUG EXPOSURE DURING PREGNANCY [None]
  - HYPERMETROPIA [None]
  - MICROPHTHALMOS [None]
  - NYSTAGMUS [None]
  - PREMATURE BABY [None]
  - VISUAL ACUITY REDUCED [None]
